FAERS Safety Report 21096153 (Version 1)
Quarter: 2022Q3

REPORT INFORMATION
  Report Type: Spontaneous
  Country: US (occurrence: US)
  Receive Date: 20220718
  Receipt Date: 20220718
  Transmission Date: 20221027
  Serious: Yes (Other)
  Sender: FDA-Public Use
  Company Number: US-MEDEXUS PHARMA, INC.-2022MED00150

PATIENT
  Age: 63 Year
  Sex: Female
  Weight: 54.422 kg

DRUGS (10)
  1. RASUVO [Suspect]
     Active Substance: METHOTREXATE SODIUM
     Indication: Rheumatoid arthritis
     Dosage: 25 MG INJECTED IN THIGHS, 1X/WEEK EVERY THURSDAY OR FRIDAY
     Dates: end: 20220217
  2. RASUVO [Suspect]
     Active Substance: METHOTREXATE SODIUM
     Dosage: 25 MG INJECTED IN THIGHS, 1X/WEEK EVERY THURSDAY OR FRIDAY
     Dates: start: 2022, end: 20220623
  3. HUMIRA [Concomitant]
     Active Substance: ADALIMUMAB
  4. METFORMIN [Concomitant]
     Active Substance: METFORMIN HYDROCHLORIDE
  5. METHIMAZOLE [Concomitant]
     Active Substance: METHIMAZOLE
  6. METOPROLOL [Concomitant]
     Active Substance: METOPROLOL
     Dosage: 50 MG, 2X/DAY
     Dates: start: 2001
  7. VITAMIN B [Concomitant]
     Active Substance: VITAMIN B
  8. VITAMIN C [Concomitant]
     Active Substance: ASCORBIC ACID
  9. UNSPECIFIED MULTIVITAMINS [Concomitant]
  10. SIMVASTATIN [Concomitant]
     Active Substance: SIMVASTATIN
     Dosage: 40 MG
     Dates: start: 2003

REACTIONS (3)
  - COVID-19 [Recovered/Resolved]
  - Product dose omission issue [Not Recovered/Not Resolved]
  - Nasopharyngitis [Unknown]

NARRATIVE: CASE EVENT DATE: 20220224
